FAERS Safety Report 20744259 (Version 1)
Quarter: 2022Q2

REPORT INFORMATION
  Report Type: Spontaneous
  Country: US (occurrence: US)
  Receive Date: 20220425
  Receipt Date: 20220425
  Transmission Date: 20220721
  Serious: No
  Sender: FDA-Public Use
  Company Number: US-GALDERMA-US2022003932

PATIENT

DRUGS (1)
  1. DIFFERIN GEL [Suspect]
     Active Substance: ADAPALENE
     Indication: Scar
     Dosage: 1 DOSAGE FORM
     Route: 061

REACTIONS (5)
  - Scar [Unknown]
  - Condition aggravated [Unknown]
  - Dry skin [Unknown]
  - Product use in unapproved indication [Recovered/Resolved]
  - Drug effective for unapproved indication [Recovered/Resolved]
